FAERS Safety Report 4761156-4 (Version None)
Quarter: 2005Q3

REPORT INFORMATION
  Report Type: 
  Country: None (occurrence: None)
  Receive Date: 20050902
  Receipt Date: 20050902
  Transmission Date: 20060218
  Serious: No
  Sender: FDA-Public Use
  Company Number: None

PATIENT
  Age: 24 Year
  Sex: Female
  Weight: 52.1637 kg

DRUGS (2)
  1. PAXIL [Suspect]
     Indication: ANXIETY
  2. PAXIL [Suspect]
     Indication: DEPRESSION

REACTIONS (18)
  - ABNORMAL DREAMS [None]
  - BALANCE DISORDER [None]
  - CHEST PAIN [None]
  - CRYING [None]
  - DISTURBANCE IN ATTENTION [None]
  - DRUG DOSE OMISSION [None]
  - DRUG WITHDRAWAL SYNDROME [None]
  - FEELING ABNORMAL [None]
  - FEELING HOT [None]
  - INFLUENZA LIKE ILLNESS [None]
  - MOTION SICKNESS [None]
  - MUSCLE SPASMS [None]
  - MUSCLE TWITCHING [None]
  - PAIN [None]
  - PALPITATIONS [None]
  - PANIC REACTION [None]
  - PHOTOPHOBIA [None]
  - TINNITUS [None]
